FAERS Safety Report 12945305 (Version 1)
Quarter: 2016Q4

REPORT INFORMATION
  Report Type: Spontaneous
  Country: US (occurrence: US)
  Receive Date: 20161115
  Receipt Date: 20161115
  Transmission Date: 20170207
  Serious: No
  Sender: FDA-Public Use
  Company Number: None

PATIENT
  Age: 32 Year
  Sex: Female
  Weight: 60.3 kg

DRUGS (2)
  1. PRENATAL VITAMINS [Concomitant]
     Active Substance: VITAMINS
  2. VITRASE [Suspect]
     Active Substance: HYALURONIDASE, OVINE
     Indication: DRUG THERAPY
     Dosage: INJECTED UNDER THE EYE, TEAR TROUGH AREA
     Dates: start: 20161007, end: 20161007

REACTIONS (2)
  - Injection site scar [None]
  - Scar [None]

NARRATIVE: CASE EVENT DATE: 20161007
